FAERS Safety Report 25395464 (Version 2)
Quarter: 2025Q2

REPORT INFORMATION
  Report Type: Spontaneous
  Country: US (occurrence: US)
  Receive Date: 20250604
  Receipt Date: 20250626
  Transmission Date: 20250717
  Serious: Yes (Other)
  Sender: BAYER HEALTHCARE PHARMACEUTICALS INC.
  Company Number: US-BAYER-2025A073439

PATIENT
  Age: 33 Year
  Sex: Female
  Weight: 70.748 kg

DRUGS (2)
  1. KYLEENA [Suspect]
     Active Substance: LEVONORGESTREL
     Indication: Contraception
     Dosage: 17.5?G/DAY
     Route: 015
     Dates: start: 20250430, end: 20250604
  2. KYLEENA [Suspect]
     Active Substance: LEVONORGESTREL
     Indication: Menstrual cycle management

REACTIONS (1)
  - Embedded device [Recovering/Resolving]

NARRATIVE: CASE EVENT DATE: 20250527
